FAERS Safety Report 18363675 (Version 1)
Quarter: 2020Q4

REPORT INFORMATION
  Report Type: Spontaneous
  Country: BE (occurrence: BE)
  Receive Date: 20201009
  Receipt Date: 20201009
  Transmission Date: 20210114
  Serious: Yes (Other)
  Sender: FDA-Public Use
  Company Number: BE-TEVA-2020-BE-1836007

PATIENT
  Sex: Male

DRUGS (1)
  1. FLUCONAZOLE 50 MG [Suspect]
     Active Substance: FLUCONAZOLE
     Indication: ORAL CANDIDIASIS
     Dosage: 2 DOSAGE FORMS
     Route: 065

REACTIONS (1)
  - Tongue oedema [Recovered/Resolved]
